FAERS Safety Report 8831766 (Version 1)
Quarter: 2012Q4

REPORT INFORMATION
  Report Type: Report from Study
  Country: US (occurrence: US)
  Receive Date: 20121009
  Receipt Date: 20121009
  Transmission Date: 20130627
  Serious: Yes (Hospitalization)
  Sender: FDA-Public Use
  Company Number: US-US-EMD SERONO, INC.-7164989

PATIENT
  Sex: Female
  Weight: 126 kg

DRUGS (6)
  1. REBIF [Suspect]
     Indication: MULTIPLE SCLEROSIS
     Route: 058
     Dates: start: 20110520
  2. OPANA ER [Concomitant]
     Indication: PAIN IN EXTREMITY
  3. LYRICA [Concomitant]
     Indication: PAIN IN EXTREMITY
  4. OXYCONTIN [Concomitant]
     Indication: PAIN IN EXTREMITY
  5. LAXATIVE [Concomitant]
     Indication: CONSTIPATION
  6. VITAMIN B12 [Concomitant]
     Indication: VITAMIN B12 DEFICIENCY

REACTIONS (10)
  - Abdominal pain [Unknown]
  - Blood iron decreased [Unknown]
  - Urinary retention [Not Recovered/Not Resolved]
  - Urinary tract infection [Not Recovered/Not Resolved]
  - Post procedural complication [Not Recovered/Not Resolved]
  - Weight increased [Not Recovered/Not Resolved]
  - Muscle spasms [Unknown]
  - Injection site erythema [Not Recovered/Not Resolved]
  - Injection site pruritus [Not Recovered/Not Resolved]
  - Influenza like illness [Not Recovered/Not Resolved]
